FAERS Safety Report 6271824-3 (Version None)
Quarter: 2009Q3

REPORT INFORMATION
  Report Type: 
  Country: None (occurrence: None)
  Receive Date: 20090717
  Receipt Date: 20090709
  Transmission Date: 20100115
  Serious: Yes (Hospitalization, Other)
  Sender: FDA-Public Use
  Company Number: SE-PFIZER INC-2009216916

PATIENT
  Age: 17 Year

DRUGS (5)
  1. LYRICA [Suspect]
     Indication: NEURALGIA
     Dosage: 300 MG, 1X/DAY
     Route: 048
     Dates: start: 20090329, end: 20090524
  2. ZOLOFT [Concomitant]
     Dosage: 25 MG, UNK
     Route: 048
  3. DICLOFENAC [Concomitant]
     Dosage: 50 MG, 3X/DAY
     Route: 048
  4. STESOLID [Concomitant]
     Dosage: 5 MG, 1X/DAY
     Route: 048
  5. ACETAMINOPHEN W/ CODEINE [Concomitant]
     Dosage: 6 TABLETS DAILY
     Route: 048

REACTIONS (6)
  - BLOOD PRESSURE DECREASED [None]
  - HEART RATE DECREASED [None]
  - MUSCULAR WEAKNESS [None]
  - SYNCOPE [None]
  - VISION BLURRED [None]
  - VISUAL ACUITY REDUCED [None]
